FAERS Safety Report 9768983 (Version 1)
Quarter: 2013Q3

REPORT INFORMATION
  Report Type: Spontaneous
  Country: IT (occurrence: None)
  Receive Date: 20130829
  Receipt Date: 20130829
  Transmission Date: 20140515
  Serious: Yes (Other)
  Sender: FDA-Public Use
  Company Number: AUR-APL-2013-06345

PATIENT
  Age: 78 Year
  Sex: Female
  Weight: 68 kg

DRUGS (3)
  1. RISPERIDONE [Suspect]
     Indication: PSYCHOTIC DISORDER
     Dosage: (1 MG,1 D)
     Route: 048
     Dates: start: 20020601, end: 20130719
  2. COMPETACT (MOPADAY) [Concomitant]
  3. TELMISARTAN (TELMISARTAN) [Concomitant]

REACTIONS (2)
  - Extrapyramidal disorder [None]
  - Balance disorder [None]
